FAERS Safety Report 5043676-0 (Version None)
Quarter: 2006Q2

REPORT INFORMATION
  Report Type: 
  Country: None (occurrence: None)
  Receive Date: 20060601
  Receipt Date: 20060127
  Transmission Date: 20061013
  Serious: No
  Sender: FDA-Public Use
  Company Number: 2006PV007754

PATIENT
  Age: 65 Year
  Sex: Female
  Weight: 75.2971 kg

DRUGS (2)
  1. BYETTA [Suspect]
     Indication: DIABETES MELLITUS NON-INSULIN-DEPENDENT
     Dosage: 5 MCG; BID; SC
     Route: 058
     Dates: start: 20051031
  2. GLUCOPHAGE [Concomitant]

REACTIONS (4)
  - ANOREXIA [None]
  - DECREASED APPETITE [None]
  - EARLY SATIETY [None]
  - WEIGHT DECREASED [None]
